FAERS Safety Report 9164038 (Version 5)
Quarter: 2013Q2

REPORT INFORMATION
  Report Type: Spontaneous
  Country: FR (occurrence: FR)
  Receive Date: 20130314
  Receipt Date: 20130426
  Transmission Date: 20140414
  Serious: Yes (Other)
  Sender: FDA-Public Use
  Company Number: FR-009507513-1302FRA007029

PATIENT
  Age: 36 Year
  Sex: Female

DRUGS (1)
  1. IMPLANON [Suspect]
     Indication: CONTRACEPTION
     Dosage: UNK
     Route: 058
     Dates: start: 201009, end: 20130219

REACTIONS (3)
  - Abortion induced [Recovered/Resolved]
  - Unintended pregnancy [Recovered/Resolved with Sequelae]
  - Incorrect drug administration duration [Unknown]
